FAERS Safety Report 16181196 (Version 2)
Quarter: 2019Q2

REPORT INFORMATION
  Report Type: Spontaneous
  Country: GB (occurrence: GB)
  Receive Date: 20190410
  Receipt Date: 20190503
  Transmission Date: 20190711
  Serious: Yes (Life-Threatening, Hospitalization, Other)
  Sender: FDA-Public Use
  Company Number: GB-PFIZER INC-2019142744

PATIENT
  Age: 35 Year
  Sex: Female

DRUGS (7)
  1. PARACETAMOL [Suspect]
     Active Substance: ACETAMINOPHEN
     Dosage: UPTO 7.5 G OF PER DAY
  2. IBUPROFEN. [Suspect]
     Active Substance: IBUPROFEN
     Indication: BACK PAIN
     Dosage: UP TO 6 G PER DAY
     Dates: start: 2017
  3. IBUPROFEN. [Suspect]
     Active Substance: IBUPROFEN
     Dosage: UP TO 6 G PER DAY
  4. RENNIE PEPPERMINT [Concomitant]
     Active Substance: CALCIUM CARBONATE\MAGNESIUM CARBONATE
     Indication: GASTROOESOPHAGEAL REFLUX DISEASE
     Dosage: UP TO 72 TABLETS, (680 MG CALCIUM CARBONATE PER TABLET)
     Route: 048
     Dates: start: 2017
  5. GAVISCON ORIGINAL ANTISEED RELIEF [Concomitant]
     Indication: GASTROOESOPHAGEAL REFLUX DISEASE
     Dosage: 600 ML, WEEKLY
     Route: 048
     Dates: start: 201702, end: 201710
  6. RENNIE PEPPERMINT [Concomitant]
     Active Substance: CALCIUM CARBONATE\MAGNESIUM CARBONATE
     Dosage: UP TO 72 TABLETS, (680 MG CALCIUM CARBONATE PER TABLET)
     Route: 048
     Dates: start: 201702, end: 201710
  7. PARACETAMOL [Suspect]
     Active Substance: ACETAMINOPHEN
     Indication: BACK PAIN
     Dosage: UPTO 7.5 G OF PER DAY
     Dates: start: 2017

REACTIONS (6)
  - Overdose [Recovered/Resolved]
  - Hepatic function abnormal [Unknown]
  - Gastric ulcer [Unknown]
  - Accidental overdose [Unknown]
  - Coagulopathy [Unknown]
  - Drug abuse [Recovered/Resolved]

NARRATIVE: CASE EVENT DATE: 2017
